FAERS Safety Report 8755889 (Version 2)
Quarter: 2012Q4

REPORT INFORMATION
  Report Type: Report from Study
  Country: CA (occurrence: CA)
  Receive Date: 20120828
  Receipt Date: 20120904
  Transmission Date: 20130627
  Serious: Yes (Other)
  Sender: FDA-Public Use
  Company Number: CA-ROCHE-1107560

PATIENT
  Age: 60 Year
  Sex: Male
  Weight: 75.7 kg

DRUGS (1)
  1. ZELBORAF [Suspect]
     Indication: MALIGNANT MELANOMA
     Dosage: Most recent dose prior to SAE 01/Jun/2012
     Route: 048
     Dates: start: 20120206

REACTIONS (1)
  - Squamous cell carcinoma of skin [Recovered/Resolved]
